FAERS Safety Report 15251459 (Version 1)
Quarter: 2018Q3

REPORT INFORMATION
  Report Type: Spontaneous
  Country: CA (occurrence: CA)
  Receive Date: 20180807
  Receipt Date: 20180807
  Transmission Date: 20181010
  Serious: Yes (Life-Threatening, Hospitalization, Other)
  Sender: FDA-Public Use
  Company Number: CA-SA-2018SA091124

PATIENT
  Sex: Male

DRUGS (5)
  1. DURVALUMAB. [Concomitant]
     Active Substance: DURVALUMAB
     Indication: LUNG ADENOCARCINOMA STAGE IV
  2. PEMETREXED DISODIUM [Suspect]
     Active Substance: PEMETREXED DISODIUM
     Indication: LUNG ADENOCARCINOMA STAGE IV
     Dosage: UNK UNK,UNK
     Route: 065
  3. TREMELIMUMAB. [Concomitant]
     Active Substance: TREMELIMUMAB
     Indication: LUNG ADENOCARCINOMA STAGE IV
     Dosage: UNK UNK, UNK
  4. CISPLATIN. [Concomitant]
     Active Substance: CISPLATIN
     Indication: LUNG ADENOCARCINOMA STAGE IV
  5. DOCETAXEL. [Suspect]
     Active Substance: DOCETAXEL
     Indication: LUNG ADENOCARCINOMA STAGE IV
     Dosage: UNK UNK,QCY
     Route: 051

REACTIONS (3)
  - Malaise [Unknown]
  - Malignant neoplasm progression [Unknown]
  - Pain [Unknown]
